FAERS Safety Report 4457550-1 (Version None)
Quarter: 2004Q3

REPORT INFORMATION
  Report Type: 
  Country: None (occurrence: None)
  Receive Date: 20040922
  Receipt Date: 20040916
  Transmission Date: 20050211
  Serious: Yes (Other)
  Sender: FDA-Public Use
  Company Number: US-JNJFOC-20040904910

PATIENT
  Age: 4 Month
  Sex: Female
  Weight: 6.804 kg

DRUGS (1)
  1. CONCENTRATED MOTRIN INFANTS' (IBUPROFEN) DROPS [Suspect]
     Indication: TEETHING
     Dosage: 25 MG, 1 IN 1 DAY, ORAL
     Route: 048
     Dates: start: 20040813, end: 20040813

REACTIONS (1)
  - CONVULSION [None]
